FAERS Safety Report 8999473 (Version 15)
Quarter: 2014Q3

REPORT INFORMATION
  Report Type: Report from Study
  Country: US (occurrence: US)
  Receive Date: 20130103
  Receipt Date: 20140922
  Transmission Date: 20150326
  Serious: Yes (Hospitalization, Other)
  Sender: FDA-Public Use
  Company Number: US-GLAXOSMITHKLINE-A1006951A

PATIENT
  Sex: Female

DRUGS (10)
  1. TOPAMAX [Concomitant]
     Active Substance: TOPIRAMATE
  2. PROMACTA [Suspect]
     Active Substance: ELTROMBOPAG OLAMINE
     Indication: NEOPLASM MALIGNANT
     Route: 048
  3. FOOD [Suspect]
     Active Substance: UNSPECIFIED INGREDIENT
  4. PLAVIX [Suspect]
     Active Substance: CLOPIDOGREL BISULFATE
     Indication: PRODUCT USED FOR UNKNOWN INDICATION
  5. COMPAZINE [Suspect]
     Active Substance: PROCHLORPERAZINE MALEATE
     Indication: PRODUCT USED FOR UNKNOWN INDICATION
     Route: 065
  6. ADVAIR HFA [Suspect]
     Active Substance: FLUTICASONE PROPIONATE\SALMETEROL XINAFOATE
     Indication: CHRONIC OBSTRUCTIVE PULMONARY DISEASE
     Route: 065
  7. ALBUTEROL. [Suspect]
     Active Substance: ALBUTEROL
     Indication: CHRONIC OBSTRUCTIVE PULMONARY DISEASE
     Route: 065
  8. CHEMOTHERAPY [Suspect]
     Active Substance: UNSPECIFIED INGREDIENT
     Indication: BREAST CANCER
  9. PESTICIDES [Suspect]
     Active Substance: UNSPECIFIED INGREDIENT
  10. GROWTH HORMONE [Suspect]
     Active Substance: SOMATROPIN

REACTIONS (38)
  - Neoplasm malignant [Unknown]
  - Amnesia [Recovering/Resolving]
  - Influenza [Unknown]
  - Diplopia [Not Recovered/Not Resolved]
  - Spinal osteoarthritis [Unknown]
  - Staphylococcus test [Unknown]
  - Blindness [Unknown]
  - Oesophageal ulcer haemorrhage [Not Recovered/Not Resolved]
  - Stomatitis [Unknown]
  - Vision blurred [Not Recovered/Not Resolved]
  - Migraine [Unknown]
  - Drug hypersensitivity [Unknown]
  - Oral candidiasis [Unknown]
  - Pneumonia [Unknown]
  - Cellulitis [Unknown]
  - Nerve compression [Unknown]
  - Headache [Unknown]
  - Haemoptysis [Unknown]
  - Malaise [Unknown]
  - Haematemesis [Not Recovered/Not Resolved]
  - Parkinson^s disease [Unknown]
  - Fatigue [Unknown]
  - Bronchitis [Recovering/Resolving]
  - Anaemia [Not Recovered/Not Resolved]
  - Vomiting [Unknown]
  - Asthma [Unknown]
  - Depression [Unknown]
  - Asthenia [Not Recovered/Not Resolved]
  - Gait disturbance [Unknown]
  - Wheelchair user [Unknown]
  - Oesophageal neoplasm [Not Recovered/Not Resolved]
  - Lung infection [Not Recovered/Not Resolved]
  - Visual field defect [Not Recovered/Not Resolved]
  - Food craving [Unknown]
  - Gastric ulcer haemorrhage [Not Recovered/Not Resolved]
  - Pleural effusion [Unknown]
  - Laceration [Unknown]
  - Rash erythematous [Unknown]

NARRATIVE: CASE EVENT DATE: 201208
